FAERS Safety Report 4491875-9 (Version None)
Quarter: 2004Q4

REPORT INFORMATION
  Report Type: 
  Country: None (occurrence: None)
  Receive Date: 20041101
  Receipt Date: 20041018
  Transmission Date: 20050328
  Serious: Yes (Other)
  Sender: FDA-Public Use
  Company Number: 702348

PATIENT
  Age: 75 Year
  Sex: Female

DRUGS (9)
  1. AMEVIVE [Suspect]
     Indication: PSORIASIS
     Dosage: 15 MG QW IM
     Dates: start: 20040622, end: 20040907
  2. ATENOLOL [Concomitant]
  3. HYDROCHLOROTHIAZIDE [Concomitant]
  4. ALLOPURINOL [Concomitant]
  5. ACTOS /USA/ [Concomitant]
  6. AMARYL [Concomitant]
  7. ATANCAND [Concomitant]
  8. LIPITOR [Concomitant]
  9. METFORMIN [Concomitant]

REACTIONS (2)
  - LYMPHOMA [None]
  - MALIGNANT NEOPLASM OF EYE [None]
